FAERS Safety Report 8059985-7 (Version None)
Quarter: 2012Q1

REPORT INFORMATION
  Report Type: 
  Country: None (occurrence: None)
  Receive Date: 20120120
  Receipt Date: 20120113
  Transmission Date: 20120608
  Serious: Yes (Hospitalization, Other)
  Sender: FDA-Public Use
  Company Number: PHHY2011JP112727

PATIENT
  Age: 46 Year
  Sex: Male

DRUGS (5)
  1. CYCLOSPORINE [Suspect]
     Route: 048
  2. CORTICOSTEROIDS [Concomitant]
     Route: 048
  3. CYCLOSPORINE [Suspect]
     Indication: RENAL TRANSPLANT
     Dosage: UNK UKN, UNK
     Route: 048
  4. CYCLOSPORINE [Suspect]
     Route: 041
  5. MYCOPHENOLATE MOFETIL [Concomitant]
     Route: 048

REACTIONS (3)
  - ANGINA PECTORIS [None]
  - RENAL FAILURE [None]
  - BLOOD CREATININE INCREASED [None]
